FAERS Safety Report 10083873 (Version 1)
Quarter: 2014Q2

REPORT INFORMATION
  Report Type: Spontaneous
  Country: IT (occurrence: None)
  Receive Date: 20140415
  Receipt Date: 20140415
  Transmission Date: 20141212
  Serious: Yes (Other)
  Sender: FDA-Public Use
  Company Number: COR_00042_2014

PATIENT
  Age: 9 Month
  Sex: Female

DRUGS (2)
  1. CARBOPLATIN (CARBOPLATIN) [Suspect]
     Indication: GLIOMA
     Dosage: CUMULATIVE DOSE 4950 MG/M2
  2. CISPLATIN (CISPLATIN) [Suspect]
     Indication: GLIOMA
     Dosage: DF

REACTIONS (2)
  - Inappropriate antidiuretic hormone secretion [None]
  - Haematotoxicity [None]
